FAERS Safety Report 23284163 (Version 2)
Quarter: 2023Q4

REPORT INFORMATION
  Report Type: Spontaneous
  Country: JP (occurrence: JP)
  Receive Date: 20231211
  Receipt Date: 20231219
  Transmission Date: 20240109
  Serious: No
  Sender: FDA-Public Use
  Company Number: JP-TAIHOP-2023-010403

PATIENT
  Age: 6 Decade
  Sex: Female

DRUGS (1)
  1. LONSURF [Suspect]
     Active Substance: TIPIRACIL HYDROCHLORIDE\TRIFLURIDINE
     Indication: Colon cancer
     Dosage: DOSE, FREQUENCY AND CYCLE WAS UNKNOWN.
     Route: 048
     Dates: start: 20230911

REACTIONS (1)
  - Nausea [Unknown]
